FAERS Safety Report 21490237 (Version 3)
Quarter: 2024Q3

REPORT INFORMATION
  Report Type: Report from Study
  Country: DE (occurrence: DE)
  Receive Date: 20221021
  Receipt Date: 20240703
  Transmission Date: 20241017
  Serious: Yes (Other)
  Sender: ROCHE
  Company Number: DE-ROCHE-3203047

PATIENT
  Age: 55 Year
  Sex: Female

DRUGS (7)
  1. OCREVUS [Suspect]
     Active Substance: OCRELIZUMAB
     Indication: Relapsing multiple sclerosis
     Route: 042
     Dates: start: 20180613, end: 20180702
  2. OCREVUS [Suspect]
     Active Substance: OCRELIZUMAB
     Route: 042
     Dates: start: 20190103
  3. COMIRNATY [Concomitant]
     Indication: COVID-19 immunisation
     Route: 030
     Dates: start: 20210504, end: 20210504
  4. COMIRNATY [Concomitant]
     Route: 030
     Dates: start: 20210525, end: 20210525
  5. COMIRNATY [Concomitant]
     Route: 030
     Dates: start: 20211125, end: 20211125
  6. INFLUVAC [Concomitant]
     Active Substance: INFLUENZA VIRUS VACCINE TRIVALENT TYPE A+B
     Route: 030
     Dates: start: 20201124, end: 20201124
  7. INFLUVAC [Concomitant]
     Active Substance: INFLUENZA VIRUS VACCINE TRIVALENT TYPE A+B
     Route: 030
     Dates: start: 20191016, end: 20191016

REACTIONS (3)
  - COVID-19 [Recovered/Resolved]
  - Borrelia infection [Recovered/Resolved]
  - Upper respiratory tract infection [Recovered/Resolved]

NARRATIVE: CASE EVENT DATE: 20220701
